FAERS Safety Report 5742690-7 (Version None)
Quarter: 2008Q2

REPORT INFORMATION
  Report Type: 
  Country: None (occurrence: None)
  Receive Date: 20080519
  Receipt Date: 20080516
  Transmission Date: 20081010
  Serious: Yes (Other)
  Sender: FDA-Public Use
  Company Number: A0728385A

PATIENT
  Sex: Female

DRUGS (14)
  1. PAXIL [Suspect]
     Indication: DEPRESSION
     Route: 048
  2. TEGRETOL [Suspect]
     Indication: DRUG USE FOR UNKNOWN INDICATION
     Dosage: 100MG TWICE PER DAY
     Route: 048
  3. VALIUM [Concomitant]
  4. HYDROCODONE BITARTRATE [Concomitant]
  5. TERAZOSIN HCL [Concomitant]
  6. COZAAR [Concomitant]
  7. ESTRADIOL [Concomitant]
  8. METFORMIN HCL [Concomitant]
  9. GLIPIZIDE [Concomitant]
  10. THEOPHYLLINE [Concomitant]
  11. COLCHICINE [Concomitant]
  12. METOPROLOL TARTRATE [Concomitant]
  13. ASPIRIN [Concomitant]
  14. MULTI-VITAMIN [Concomitant]

REACTIONS (7)
  - ADVERSE EVENT [None]
  - ATRIOVENTRICULAR BLOCK [None]
  - GAIT DISTURBANCE [None]
  - HEARING IMPAIRED [None]
  - HYPERTENSION [None]
  - MENTAL STATUS CHANGES [None]
  - VISUAL DISTURBANCE [None]
